FAERS Safety Report 4663529-7 (Version None)
Quarter: 2005Q2

REPORT INFORMATION
  Report Type: 
  Country: None (occurrence: None)
  Receive Date: 20050517
  Receipt Date: 20050325
  Transmission Date: 20051028
  Serious: Yes (Hospitalization)
  Sender: FDA-Public Use
  Company Number: FR-GLAXOSMITHKLINE-B0376424A

PATIENT
  Age: 69 Year
  Sex: Female
  Weight: 65 kg

DRUGS (9)
  1. ONDANSETRON [Suspect]
     Dosage: 8MG PER DAY
     Route: 048
     Dates: start: 20050209, end: 20050220
  2. ZOVIRAX [Suspect]
     Dosage: 2250MG PER DAY
     Route: 042
     Dates: start: 20050216, end: 20050221
  3. POLARAMINE [Suspect]
     Dosage: 15MG PER DAY
     Route: 042
     Dates: start: 20050209, end: 20050220
  4. MOPRAL [Suspect]
     Dosage: 20MG PER DAY
     Route: 048
     Dates: start: 20050209, end: 20050222
  5. PRIMPERAN TAB [Suspect]
     Dosage: 60MG PER DAY
     Route: 042
  6. NEURONTIN [Suspect]
     Route: 048
     Dates: start: 20050218, end: 20050221
  7. FRAXODI [Concomitant]
     Route: 058
  8. FUNGIZONE [Concomitant]
     Route: 065
  9. CHEMOTHERAPY [Concomitant]
     Indication: LYMPHANGIOLEIOMYOMATOSIS
     Route: 065

REACTIONS (10)
  - ABNORMAL DREAMS [None]
  - COGNITIVE DISORDER [None]
  - CONFUSIONAL STATE [None]
  - DISORIENTATION [None]
  - HALLUCINATION, VISUAL [None]
  - HYPERSOMNIA [None]
  - INCOHERENT [None]
  - METABOLIC ENCEPHALOPATHY [None]
  - PSYCHOMOTOR RETARDATION [None]
  - RETROGRADE AMNESIA [None]
